FAERS Safety Report 19873266 (Version 2)
Quarter: 2021Q4

REPORT INFORMATION
  Report Type: Spontaneous
  Country: FR (occurrence: FR)
  Receive Date: 20210922
  Receipt Date: 20211006
  Transmission Date: 20220304
  Serious: Yes (Hospitalization, Other)
  Sender: FDA-Public Use
  Company Number: FR-KRKA-FR2021K05977LIT

PATIENT
  Age: 80 Year
  Sex: Female

DRUGS (4)
  1. IBUPROFEN [Suspect]
     Active Substance: IBUPROFEN
     Indication: Osteoarthritis
     Dosage: AS NEEDED
  2. OMEPRAZOLE [Suspect]
     Active Substance: OMEPRAZOLE
     Indication: Gastrooesophageal reflux disease
     Dosage: UNK
  3. CANDESARTAN [Suspect]
     Active Substance: CANDESARTAN
     Indication: Hypertension
     Dosage: UNK
  4. CANDESARTAN CILEXETIL\HYDROCHLOROTHIAZIDE [Suspect]
     Active Substance: CANDESARTAN CILEXETIL\HYDROCHLOROTHIAZIDE
     Indication: Hypertension
     Dosage: UNK

REACTIONS (9)
  - Asthenia [Recovered/Resolved]
  - Leishmaniasis [Unknown]
  - Pancytopenia [Unknown]
  - Hyponatraemia [Unknown]
  - Epstein-Barr virus infection reactivation [Not Recovered/Not Resolved]
  - Visceral leishmaniasis [Recovered/Resolved]
  - Anaemia [Recovered/Resolved]
  - Acute kidney injury [Unknown]
  - Dehydration [Unknown]
